FAERS Safety Report 14232996 (Version 1)
Quarter: 2017Q4

REPORT INFORMATION
  Report Type: Spontaneous
  Country: US (occurrence: US)
  Receive Date: 20171128
  Receipt Date: 20171128
  Transmission Date: 20180321
  Serious: Yes (Hospitalization)
  Sender: FDA-Public Use
  Company Number: US-LEADIANT BIOSCIENCES INC-2017STPI000068

PATIENT
  Age: 49 Year
  Sex: Male

DRUGS (10)
  1. NOVOLOG [Concomitant]
     Active Substance: INSULIN ASPART
  2. POTASSIUM CHLORIDE. [Concomitant]
     Active Substance: POTASSIUM CHLORIDE
  3. PREDNISONE. [Concomitant]
     Active Substance: PREDNISONE
  4. LANTUS [Concomitant]
     Active Substance: INSULIN GLARGINE
  5. HUMALOG [Concomitant]
     Active Substance: INSULIN LISPRO
  6. MATULANE [Suspect]
     Active Substance: PROCARBAZINE HYDROCHLORIDE
     Indication: HODGKIN^S DISEASE NODULAR SCLEROSIS
     Dosage: 150 MG, OTHER
     Route: 048
     Dates: start: 20161213
  7. FEXOFENADINE [Concomitant]
     Active Substance: FEXOFENADINE\FEXOFENADINE HYDROCHLORIDE
  8. ALLOPURINOL. [Concomitant]
     Active Substance: ALLOPURINOL
  9. ATORVASTATIN [Concomitant]
     Active Substance: ATORVASTATIN
  10. METFORMIN [Concomitant]
     Active Substance: METFORMIN HYDROCHLORIDE

REACTIONS (3)
  - Pyrexia [Unknown]
  - Platelet count decreased [Unknown]
  - White blood cell count decreased [Unknown]

NARRATIVE: CASE EVENT DATE: 20170119
